FAERS Safety Report 5415176-7 (Version None)
Quarter: 2007Q3

REPORT INFORMATION
  Report Type: 
  Country: None (occurrence: None)
  Receive Date: 20070815
  Receipt Date: 20070706
  Transmission Date: 20080115
  Serious: No
  Sender: FDA-Public Use
  Company Number: A0663810A

PATIENT
  Sex: Male

DRUGS (1)
  1. COREG CR [Suspect]

REACTIONS (3)
  - EPINEPHRINE ABNORMAL [None]
  - HEART RATE INCREASED [None]
  - MALAISE [None]
